FAERS Safety Report 23394811 (Version 1)
Quarter: 2024Q1

REPORT INFORMATION
  Report Type: Report from Study
  Country: US (occurrence: US)
  Receive Date: 20240112
  Receipt Date: 20240112
  Transmission Date: 20240410
  Serious: No
  Sender: FDA-Public Use
  Company Number: US-ACADIA PHARMACEUTICALS INC.-ACA-2023-PIM-006020

PATIENT
  Age: 70 Year
  Sex: Female

DRUGS (9)
  1. NUPLAZID [Suspect]
     Active Substance: PIMAVANSERIN TARTRATE
     Indication: Parkinson^s disease
     Dosage: 34 MILLIGRAM
     Route: 048
     Dates: start: 20231115
  2. NUPLAZID [Suspect]
     Active Substance: PIMAVANSERIN TARTRATE
     Indication: Hallucination
  3. BACLOFEN [Concomitant]
     Active Substance: BACLOFEN
  4. ALLOPURINOL [Concomitant]
     Active Substance: ALLOPURINOL
  5. CARBIDOPA AND LEVODOPA [Concomitant]
     Active Substance: CARBIDOPA\LEVODOPA
     Dosage: ER 50/200
  6. ATORVASTATIN [Concomitant]
     Active Substance: ATORVASTATIN
  7. DULOXETINE [Concomitant]
     Active Substance: DULOXETINE
  8. PANTOPRAZOLE [Concomitant]
     Active Substance: PANTOPRAZOLE
  9. CARBIDOPA LEVODOPA [Concomitant]
     Active Substance: CARBIDOPA\LEVODOPA
     Dosage: 25/100

REACTIONS (2)
  - Dry mouth [Unknown]
  - Hallucination [Unknown]

NARRATIVE: CASE EVENT DATE: 20231115
